FAERS Safety Report 7917683-1 (Version None)
Quarter: 2011Q4

REPORT INFORMATION
  Report Type: 
  Country: None (occurrence: None)
  Receive Date: 20111116
  Receipt Date: 20111108
  Transmission Date: 20120403
  Serious: Yes (Death)
  Sender: FDA-Public Use
  Company Number: US-JNJFOC-20110912134

PATIENT
  Sex: Male
  Weight: 58.51 kg

DRUGS (4)
  1. ZYTIGA [Suspect]
     Indication: PRODUCT USED FOR UNKNOWN INDICATION
     Route: 048
  2. PREDNISONE [Concomitant]
     Route: 065
  3. PERCOCET [Concomitant]
     Indication: PAIN
     Route: 065
  4. OXYCONTIN [Concomitant]
     Indication: PAIN
     Route: 065

REACTIONS (2)
  - PROSTATE CANCER METASTATIC [None]
  - FATIGUE [None]
